FAERS Safety Report 4730260-9 (Version None)
Quarter: 2005Q3

REPORT INFORMATION
  Report Type: 
  Country: None (occurrence: None)
  Receive Date: 20050729
  Receipt Date: 20050729
  Transmission Date: 20060218
  Serious: No
  Sender: FDA-Public Use
  Company Number: None

PATIENT
  Age: 54 Year
  Sex: Female
  Weight: 56.2 kg

DRUGS (15)
  1. PACLITAXEL 300MG/50ML IVAX PHARMACEUTICALS [Suspect]
     Indication: BREAST CANCER
     Dosage: 275 MG Q2 WEEKS INTRAVENOUS
     Route: 042
     Dates: start: 20050705, end: 20050705
  2. GEMCITABINE 40MG/ML NCI SUPPLIED [Suspect]
     Indication: BREAST CANCER
     Dosage: 3150 Q2WEEKS INTRAVENOUS
     Route: 042
     Dates: start: 20050705, end: 20050705
  3. DOCUSATE [Concomitant]
  4. LORAZEPAM [Concomitant]
  5. MORPHINE ER [Concomitant]
  6. OXYCODONE [Concomitant]
  7. LEVOTHROID [Concomitant]
  8. FLUOXETINE [Concomitant]
  9. PROCRIT [Concomitant]
  10. OXAZEPAM [Concomitant]
  11. NEUPOGEN [Concomitant]
  12. COMPAZINE [Concomitant]
  13. FAMOTIDINE [Concomitant]
  14. DIPHENHYDRAMINE HCL [Concomitant]
  15. ANZEMET [Concomitant]

REACTIONS (11)
  - BALANCE DISORDER [None]
  - BLOOD LACTATE DEHYDROGENASE INCREASED [None]
  - CONFUSIONAL STATE [None]
  - DYSARTHRIA [None]
  - FALL [None]
  - HAEMOLYTIC ANAEMIA [None]
  - MEMORY IMPAIRMENT [None]
  - NERVOUS SYSTEM DISORDER [None]
  - RETICULOCYTOSIS [None]
  - SPEECH DISORDER [None]
  - THROMBOCYTOPENIA [None]
